FAERS Safety Report 7064765-5 (Version None)
Quarter: 2010Q4

REPORT INFORMATION
  Report Type: 
  Country: None (occurrence: None)
  Receive Date: 20101027
  Receipt Date: 19780330
  Transmission Date: 20110411
  Serious: Yes (Death)
  Sender: FDA-Public Use
  Company Number: GB-ROCHE-780419161001

PATIENT
  Sex: Female
  Weight: 16.5 kg

DRUGS (4)
  1. VALIUM [Suspect]
     Indication: EPILEPSY
     Route: 042
     Dates: start: 19741201, end: 19741205
  2. VALIUM [Suspect]
     Route: 042
     Dates: start: 19741119
  3. PHENYTOIN [Concomitant]
     Indication: EPILEPSY
     Route: 048
  4. PHENOBARBITAL TAB [Concomitant]
     Indication: EPILEPSY
     Route: 048

REACTIONS (3)
  - GRAND MAL CONVULSION [None]
  - HAEMATURIA [None]
  - PROTEINURIA [None]
